FAERS Safety Report 6433687-2 (Version None)
Quarter: 2009Q4

REPORT INFORMATION
  Report Type: 
  Country: None (occurrence: None)
  Receive Date: 20091110
  Receipt Date: 20091029
  Transmission Date: 20100525
  Serious: No
  Sender: FDA-Public Use
  Company Number: ZA-ROCHE-663970

PATIENT
  Sex: Male
  Weight: 55 kg

DRUGS (1)
  1. ROACCUTANE [Suspect]
     Indication: ACNE
     Dosage: FREQUENCY REPORTED AS DAILY
     Route: 048
     Dates: start: 20090715, end: 20091022

REACTIONS (2)
  - BONE DISORDER [None]
  - EPIPHYSES PREMATURE FUSION [None]
